FAERS Safety Report 22098413 (Version 1)
Quarter: 2023Q1

REPORT INFORMATION
  Report Type: Spontaneous
  Country: ES (occurrence: ES)
  Receive Date: 20230315
  Receipt Date: 20230315
  Transmission Date: 20230417
  Serious: Yes (Life-Threatening, Hospitalization)
  Sender: FDA-Public Use
  Company Number: None

PATIENT
  Age: 64 Year
  Sex: Male
  Weight: 116.2 kg

DRUGS (3)
  1. BUPRENORPHINE [Interacting]
     Active Substance: BUPRENORPHINE
     Indication: Cancer pain
     Dosage: 1 PATCH EVERY 3-4 DAYS (THE PATIENT CHANGED IT EVERY 7 DAYS)  , 70 MICROGRAMS/H (72 H) 10 TRANSDERM
     Dates: start: 20220303, end: 20221203
  2. TRAMADOL [Interacting]
     Active Substance: TRAMADOL
     Indication: Back pain
     Dosage: 1 AMPOULE IN A SINGLE DOSE   , TRAMADOL (2389A)
     Dates: start: 20221203, end: 20221203
  3. MORPHINE SULFATE [Interacting]
     Active Substance: MORPHINE SULFATE
     Indication: Back pain
     Dosage: 1 30MG TABLET + 1 15MG TABLET EVERY 12 HOURS (45MG EVERY 12 HOURS) ,. 60 TABLETS  ,
     Dates: start: 20221203, end: 20221206

REACTIONS (6)
  - Respiratory acidosis [Recovered/Resolved]
  - Depressed level of consciousness [Recovered/Resolved]
  - Pneumonia aspiration [Recovered/Resolved]
  - Acute respiratory failure [Recovered/Resolved]
  - Ileus paralytic [Recovered/Resolved]
  - Drug interaction [Unknown]

NARRATIVE: CASE EVENT DATE: 20221204
